FAERS Safety Report 23171066 (Version 3)
Quarter: 2023Q4

REPORT INFORMATION
  Report Type: Report from Study
  Country: RU (occurrence: None)
  Receive Date: 20231110
  Receipt Date: 20231130
  Transmission Date: 20240109
  Serious: Yes (Hospitalization)
  Sender: FDA-Public Use
  Company Number: RU-ROCHE-3452102

PATIENT
  Age: 30 Year
  Sex: Female
  Weight: 52 kg

DRUGS (12)
  1. OBINUTUZUMAB [Suspect]
     Active Substance: OBINUTUZUMAB
     Indication: Lupus nephritis
     Dosage: DOSE CONCENTRATION 4 MG/ML. ON 09/AUG/2023, MOST RECENT DOSE OF OPEN LABEL OBINUTUZUMAB PRIOR TO AE/
     Route: 042
     Dates: start: 20220811
  2. OBINUTUZUMAB [Suspect]
     Active Substance: OBINUTUZUMAB
     Indication: Lupus nephritis
     Dosage: ON 10/JAN/2022, SHE RECEIVED BLINDED OBINUTUZUMAB, STARTING AT 8:30 AM AND ENDING AT 9:00 AM
     Route: 042
     Dates: start: 20210111
  3. MYCOPHENOLATE MOFETIL [Suspect]
     Active Substance: MYCOPHENOLATE MOFETIL
     Indication: Lupus nephritis
     Route: 048
     Dates: start: 20210111
  4. MYCOPHENOLATE MOFETIL [Suspect]
     Active Substance: MYCOPHENOLATE MOFETIL
     Dosage: ON ON 24/SEP/2023, RECEIVED MOST RECENT DOSE 1500 MG OF MYCOPHENOLATE MOFETIL PRIOR TO SAE AND END O
     Route: 048
  5. LISINOPRIL [Concomitant]
     Active Substance: LISINOPRIL
     Indication: Lupus nephritis
     Route: 048
     Dates: start: 2018, end: 20231104
  6. ACETYLSALICYLIC ACID;MAGNESIUM HYDROXIDE [Concomitant]
     Indication: Lupus nephritis
     Route: 048
     Dates: start: 2018, end: 20231104
  7. OMEPRAZOLE [Concomitant]
     Active Substance: OMEPRAZOLE
     Route: 048
     Dates: start: 2018, end: 20231104
  8. CALCIUM CARBONATE [Concomitant]
     Active Substance: CALCIUM CARBONATE
     Route: 048
     Dates: start: 20201214, end: 20231104
  9. CHOLECALCIFEROL [Concomitant]
     Active Substance: CHOLECALCIFEROL
     Dosage: 600 OTHER
     Route: 048
     Dates: start: 20201214, end: 20231104
  10. METHYLPREDNISOLONE [Concomitant]
     Active Substance: METHYLPREDNISOLONE
     Indication: Lupus nephritis
     Route: 048
     Dates: start: 20230306, end: 202309
  11. METHYLPREDNISOLONE [Concomitant]
     Active Substance: METHYLPREDNISOLONE
     Route: 048
     Dates: start: 20231003, end: 20231010
  12. METHYLPREDNISOLONE [Concomitant]
     Active Substance: METHYLPREDNISOLONE
     Indication: Lupus nephritis
     Route: 048
     Dates: start: 20231011, end: 20231104

REACTIONS (1)
  - Lupus pneumonitis [Recovered/Resolved with Sequelae]

NARRATIVE: CASE EVENT DATE: 20230924
